FAERS Safety Report 24375833 (Version 1)
Quarter: 2024Q3

REPORT INFORMATION
  Report Type: Spontaneous
  Country: US (occurrence: US)
  Receive Date: 20240928
  Receipt Date: 20240928
  Transmission Date: 20241017
  Serious: No
  Sender: SANOFI AVENTIS
  Company Number: US-SA-2024SA274743

PATIENT
  Age: 84 Year
  Sex: Male

DRUGS (11)
  1. DUPIXENT [Suspect]
     Active Substance: DUPILUMAB
     Indication: Dermatitis
     Dosage: 600 MG, 1X
     Route: 058
     Dates: start: 202407, end: 202407
  2. DUPIXENT [Suspect]
     Active Substance: DUPILUMAB
     Dosage: 300 MG, QOW
     Route: 058
     Dates: start: 2024
  3. SALICYLIC ACID [Concomitant]
     Active Substance: SALICYLIC ACID
     Indication: Pain in extremity
     Dosage: UNK
  4. SALICYLIC ACID [Concomitant]
     Active Substance: SALICYLIC ACID
     Indication: Burning sensation
  5. SALICYLIC ACID [Concomitant]
     Active Substance: SALICYLIC ACID
     Indication: Tenderness
  6. BETAMETHASONE DIPROPIONATE [Concomitant]
     Active Substance: BETAMETHASONE DIPROPIONATE
     Indication: Pain in extremity
     Dosage: UNK
     Route: 061
  7. BETAMETHASONE DIPROPIONATE [Concomitant]
     Active Substance: BETAMETHASONE DIPROPIONATE
     Indication: Burning sensation
  8. BETAMETHASONE DIPROPIONATE [Concomitant]
     Active Substance: BETAMETHASONE DIPROPIONATE
     Indication: Tenderness
  9. UREA [Concomitant]
     Active Substance: UREA
     Indication: Pain in extremity
     Dosage: UNK
  10. UREA [Concomitant]
     Active Substance: UREA
     Indication: Burning sensation
  11. UREA [Concomitant]
     Active Substance: UREA
     Indication: Tenderness

REACTIONS (3)
  - COVID-19 [Not Recovered/Not Resolved]
  - Cough [Not Recovered/Not Resolved]
  - Product use in unapproved indication [Unknown]

NARRATIVE: CASE EVENT DATE: 20240701
